FAERS Safety Report 7904632-5 (Version None)
Quarter: 2011Q4

REPORT INFORMATION
  Report Type: 
  Country: None (occurrence: None)
  Receive Date: 20111109
  Receipt Date: 20111102
  Transmission Date: 20120403
  Serious: Yes (Death)
  Sender: FDA-Public Use
  Company Number: US-GLAXOSMITHKLINE-A0943451A

PATIENT
  Age: 68 Year
  Sex: Male

DRUGS (6)
  1. ADVAIR DISKUS 100/50 [Suspect]
     Indication: ASTHMA
     Route: 055
  2. NAMENDA [Concomitant]
  3. PLAVIX [Concomitant]
  4. TOPROL-XL [Concomitant]
  5. VENTOLIN [Suspect]
     Indication: ASTHMA
     Route: 055
  6. EYE DROPS [Concomitant]

REACTIONS (1)
  - CARDIAC FAILURE CONGESTIVE [None]
